FAERS Safety Report 4329845-3 (Version None)
Quarter: 2004Q1

REPORT INFORMATION
  Report Type: 
  Country: None (occurrence: None)
  Receive Date: 20040329
  Receipt Date: 20040324
  Transmission Date: 20041129
  Serious: Yes (Hospitalization)
  Sender: FDA-Public Use
  Company Number: EM2004-0137

PATIENT
  Age: 40 Year
  Sex: Male

DRUGS (2)
  1. PROLEUKIN [Suspect]
     Indication: HIV INFECTION
     Dosage: 4.5 MIU, BID, SUBCUTAN.
     Route: 058
     Dates: start: 20020422, end: 20020426
  2. INDINAVIR (INDINAVIR) [Suspect]
     Indication: HIV INFECTION
     Dosage: 800 MG, TID, ORAL
     Route: 048
     Dates: start: 19961125, end: 20030107

REACTIONS (1)
  - NEPHROLITHIASIS [None]
